FAERS Safety Report 11972825 (Version 1)
Quarter: 2016Q1

REPORT INFORMATION
  Report Type: Spontaneous
  Country: CA (occurrence: CA)
  Receive Date: 20160128
  Receipt Date: 20160128
  Transmission Date: 20160526
  Serious: Yes (Death)
  Sender: FDA-Public Use
  Company Number: CA-TEVA-628500ACC

PATIENT
  Age: 29 Year
  Sex: Male
  Weight: 130 kg

DRUGS (5)
  1. CYCLOBENZAPRINE [Suspect]
     Active Substance: CYCLOBENZAPRINE
  2. RISPERIDONE. [Concomitant]
     Active Substance: RISPERIDONE
  3. CLONAZEPAM. [Suspect]
     Active Substance: CLONAZEPAM
  4. QUETIAPINE [Suspect]
     Active Substance: QUETIAPINE
  5. VENLAFAXINE XR [Concomitant]
     Active Substance: VENLAFAXINE HYDROCHLORIDE

REACTIONS (2)
  - Antipsychotic drug level above therapeutic [Fatal]
  - Anticonvulsant drug level above therapeutic [Fatal]
